FAERS Safety Report 5642600-7 (Version None)
Quarter: 2008Q1

REPORT INFORMATION
  Report Type: 
  Country: None (occurrence: None)
  Receive Date: 20080227
  Receipt Date: 20080227
  Transmission Date: 20080703
  Serious: Yes (Hospitalization)
  Sender: FDA-Public Use
  Company Number: None

PATIENT
  Sex: Male
  Weight: 74.8435 kg

DRUGS (1)
  1. INSULIN [Suspect]
     Indication: DIABETES MELLITUS
     Dosage: (THERAPY DATES: PRIOR TO ADMISSION)

REACTIONS (3)
  - BLOOD GLUCOSE DECREASED [None]
  - DEPRESSED LEVEL OF CONSCIOUSNESS [None]
  - HYPERHIDROSIS [None]
